FAERS Safety Report 6979607-3 (Version None)
Quarter: 2010Q3

REPORT INFORMATION
  Report Type: 
  Country: None (occurrence: None)
  Receive Date: 20100910
  Receipt Date: 20100910
  Transmission Date: 20110219
  Serious: Yes (Hospitalization)
  Sender: FDA-Public Use
  Company Number: None

PATIENT
  Sex: Female
  Weight: 75 kg

DRUGS (2)
  1. FLUDARABINE PHOSPHATE [Suspect]
     Dosage: 45 MG
     Dates: end: 20100823
  2. RITUXIMAB (MOAB C2B8 ANTI CD20, CHIMERIC) [Suspect]
     Dosage: 1305 MG
     Dates: end: 20100827

REACTIONS (4)
  - BODY TEMPERATURE INCREASED [None]
  - NASAL CONGESTION [None]
  - SINUS DISORDER [None]
  - UPPER-AIRWAY COUGH SYNDROME [None]
